FAERS Safety Report 15526297 (Version 1)
Quarter: 2018Q4

REPORT INFORMATION
  Report Type: Spontaneous
  Country: US (occurrence: US)
  Receive Date: 20181018
  Receipt Date: 20181018
  Transmission Date: 20190205
  Serious: Yes (Other)
  Sender: FDA-Public Use
  Company Number: US-PFIZER INC-2018419918

PATIENT
  Age: 58 Year
  Sex: Female

DRUGS (1)
  1. SOLU-MEDROL [Suspect]
     Active Substance: METHYLPREDNISOLONE SODIUM SUCCINATE
     Dosage: UNK

REACTIONS (5)
  - Diabetes mellitus [Unknown]
  - Depression [Unknown]
  - Neuropathy peripheral [Unknown]
  - Cushingoid [Unknown]
  - Weight increased [Unknown]
